FAERS Safety Report 7659362-4 (Version None)
Quarter: 2011Q3

REPORT INFORMATION
  Report Type: 
  Country: None (occurrence: None)
  Receive Date: 20110805
  Receipt Date: 20110725
  Transmission Date: 20111222
  Serious: Yes (Other)
  Sender: FDA-Public Use
  Company Number: US-ROCHE-712608

PATIENT
  Sex: Male
  Weight: 53.1 kg

DRUGS (4)
  1. ACCUTANE [Suspect]
     Route: 048
     Dates: start: 20031229, end: 20040501
  2. ACCUTANE [Suspect]
     Route: 048
     Dates: start: 20040601, end: 20040701
  3. ACCUTANE [Suspect]
     Indication: ACNE
     Route: 048
     Dates: start: 19980101
  4. AMNESTEEM [Suspect]
     Indication: ACNE
     Route: 065
     Dates: start: 20040101

REACTIONS (5)
  - COLITIS ULCERATIVE [None]
  - LIP DRY [None]
  - INFLAMMATORY BOWEL DISEASE [None]
  - STRESS [None]
  - DRY SKIN [None]
